FAERS Safety Report 7986932-6 (Version None)
Quarter: 2011Q4

REPORT INFORMATION
  Report Type: 
  Country: None (occurrence: None)
  Receive Date: 20111216
  Receipt Date: 20110909
  Transmission Date: 20120403
  Serious: No
  Sender: FDA-Public Use
  Company Number: US-BRISTOL-MYERS SQUIBB COMPANY-16047854

PATIENT
  Age: 18 Year
  Sex: Female
  Weight: 73 kg

DRUGS (2)
  1. PROZAC [Suspect]
     Indication: ANXIETY
     Dosage: DOSE INCREASED TO 40MG
     Route: 048
  2. ABILIFY [Suspect]
     Indication: ANXIETY
     Dosage: NDC#: 59148-007-13, PRESCRIPTION #: 827425
     Route: 048

REACTIONS (1)
  - PAIN [None]
